FAERS Safety Report 24116781 (Version 2)
Quarter: 2025Q2

REPORT INFORMATION
  Report Type: Spontaneous
  Country: US (occurrence: US)
  Receive Date: 20240722
  Receipt Date: 20250502
  Transmission Date: 20250717
  Serious: No
  Sender: ASTELLAS
  Company Number: US-ASTELLAS-2024US018138

PATIENT
  Age: 76 Year
  Sex: Female

DRUGS (1)
  1. MYRBETRIQ [Suspect]
     Active Substance: MIRABEGRON
     Indication: Hypertonic bladder
     Dosage: 25 MG, ONCE DAILY
     Route: 048
     Dates: start: 202405

REACTIONS (1)
  - Expired product administered [Unknown]

NARRATIVE: CASE EVENT DATE: 20240623
